FAERS Safety Report 6405392-X (Version None)
Quarter: 2009Q4

REPORT INFORMATION
  Report Type: 
  Country: None (occurrence: None)
  Receive Date: 20091019
  Receipt Date: 20091007
  Transmission Date: 20100525
  Serious: Yes (Death, Hospitalization, Other)
  Sender: FDA-Public Use
  Company Number: IN-PFIZER INC-2008069641

PATIENT
  Age: 57 Year

DRUGS (1)
  1. SUTENT [Suspect]
     Route: 048

REACTIONS (3)
  - DEATH [None]
  - DYSPNOEA [None]
  - NEPHRECTOMY [None]
